FAERS Safety Report 9701797 (Version 2)
Quarter: 2013Q4

REPORT INFORMATION
  Report Type: Spontaneous
  Country: BE (occurrence: BE)
  Receive Date: 20131121
  Receipt Date: 20131128
  Transmission Date: 20140711
  Serious: Yes (Hospitalization)
  Sender: FDA-Public Use
  Company Number: BE-SA-2013SA119236

PATIENT
  Age: 32 Year
  Sex: Male
  Weight: 83 kg

DRUGS (6)
  1. FABRAZYME [Suspect]
     Indication: FABRY^S DISEASE
     Route: 042
     Dates: start: 2012
  2. NSAID^S [Suspect]
     Indication: PRODUCT USED FOR UNKNOWN INDICATION
     Route: 065
     Dates: start: 201309
  3. CITALOPRAM [Concomitant]
     Indication: DEPRESSION
     Route: 048
  4. ATORVASTATIN [Concomitant]
     Indication: HYPERCHOLESTEROLAEMIA
     Route: 048
  5. ASAFLOW [Concomitant]
     Indication: CEREBROVASCULAR ACCIDENT
     Route: 048
  6. DICLOFENAC [Concomitant]
     Dosage: FOUR DAYS

REACTIONS (5)
  - Meningitis aseptic [Recovered/Resolved]
  - Headache [Recovered/Resolved]
  - Pleocytosis [Recovered/Resolved]
  - Neck pain [Recovered/Resolved]
  - Tandem gait test abnormal [Recovered/Resolved]
